FAERS Safety Report 18340581 (Version 2)
Quarter: 2020Q4

REPORT INFORMATION
  Report Type: Spontaneous
  Country: US (occurrence: US)
  Receive Date: 20201002
  Receipt Date: 20201210
  Transmission Date: 20210113
  Serious: Yes (Hospitalization)
  Sender: FDA-Public Use
  Company Number: US-ALKERMES INC.-ALK-2020-004275

PATIENT
  Age: 44 Year
  Sex: Female

DRUGS (2)
  1. VIVITROL [Suspect]
     Active Substance: NALTREXONE
     Indication: ALCOHOLISM
     Dosage: 380 MILLIGRAM, QMO
     Route: 030
     Dates: start: 202003, end: 202003
  2. VIVITROL [Suspect]
     Active Substance: NALTREXONE
     Dosage: 380 MILLIGRAM, QMO
     Route: 030
     Dates: start: 2018, end: 2018

REACTIONS (3)
  - Illness [Recovered/Resolved]
  - Alcoholism [Recovered/Resolved]
  - Coronavirus infection [Recovered/Resolved]

NARRATIVE: CASE EVENT DATE: 202004
